FAERS Safety Report 9742636 (Version 2)
Quarter: 2013Q4

REPORT INFORMATION
  Report Type: Spontaneous
  Country: US (occurrence: US)
  Receive Date: 20131210
  Receipt Date: 20131210
  Transmission Date: 20140711
  Serious: No
  Sender: FDA-Public Use
  Company Number: US-GILEAD-2009-0024561

PATIENT
  Age: 76 Year
  Sex: Female
  Weight: 67.58 kg

DRUGS (20)
  1. LETAIRIS [Suspect]
     Indication: PULMONARY ARTERIAL HYPERTENSION
     Route: 048
     Dates: start: 20090709
  2. HYDROCHLOROTHIAZIDE [Concomitant]
  3. NORVASC [Concomitant]
  4. NITROGLYCERIN [Concomitant]
  5. QUINAPRIL [Concomitant]
  6. ASPIRIN [Concomitant]
  7. XANAX [Concomitant]
  8. AMBIEN [Concomitant]
  9. ALLEGRA [Concomitant]
  10. CELEXA [Concomitant]
  11. MOBIC [Concomitant]
  12. PREVACID [Concomitant]
  13. LEVOXYL [Concomitant]
  14. 20/20 EYE DROP [Concomitant]
  15. FLAX SEED OIL [Concomitant]
  16. PERCOCET [Concomitant]
  17. FOLIC ACID [Concomitant]
  18. VITAMIN B [Concomitant]
  19. CALTRATE [Concomitant]
  20. CENTRUM SILVER [Concomitant]

REACTIONS (2)
  - Nausea [Unknown]
  - Headache [Unknown]
